FAERS Safety Report 6647289-6 (Version None)
Quarter: 2010Q1

REPORT INFORMATION
  Report Type: 
  Country: None (occurrence: None)
  Receive Date: 20100323
  Receipt Date: 20100312
  Transmission Date: 20100710
  Serious: Yes (Other)
  Sender: FDA-Public Use
  Company Number: B0548333A

PATIENT
  Sex: Female

DRUGS (5)
  1. FLUTICASONE PROPIONATE+SALMETEROL XINAFOATE [Suspect]
     Indication: ASTHMA
     Route: 055
     Dates: start: 20080110, end: 20081113
  2. SALBUTAMOL [Concomitant]
     Indication: ASTHMA
     Dosage: 100MCG PER DAY
     Route: 055
     Dates: start: 20070701, end: 20081121
  3. CLINDAMYCIN [Concomitant]
     Dosage: 1.2G PER DAY
     Route: 048
     Dates: start: 20081105, end: 20081112
  4. CONDOM [Concomitant]
  5. SPERMICIDE [Concomitant]

REACTIONS (2)
  - ABORTION SPONTANEOUS [None]
  - DRUG EXPOSURE DURING PREGNANCY [None]
